FAERS Safety Report 5566427-X (Version None)
Quarter: 2007Q4

REPORT INFORMATION
  Report Type: 
  Country: None (occurrence: None)
  Receive Date: 20071217
  Receipt Date: 20071217
  Transmission Date: 20080405
  Serious: Yes (Hospitalization)
  Sender: FDA-Public Use
  Company Number: None

PATIENT
  Sex: Female
  Weight: 73.0291 kg

DRUGS (21)
  1. AVASTIN [Suspect]
     Indication: MACULAR DEGENERATION
     Dosage: 1.25 MG ONCE 031
     Dates: start: 20070423
  2. VISUDYNE [Suspect]
     Dosage: 10.74 MG ONCE 040
     Dates: start: 20070423
  3. 75/25 INSULIN [Concomitant]
  4. PREVACID [Concomitant]
  5. ASPIRIN [Concomitant]
  6. DIGOXIN [Concomitant]
  7. TOPROL-XL [Concomitant]
  8. NORVASC [Concomitant]
  9. LISINOPRIL [Concomitant]
  10. LEXAPRO [Concomitant]
  11. SPIRIVA [Concomitant]
  12. AMBIEN [Concomitant]
  13. VICODIN [Concomitant]
  14. PREVACID [Concomitant]
  15. NORVASC [Concomitant]
  16. LEXAPRO [Concomitant]
  17. LISINOPRIL [Concomitant]
  18. AMBIEN [Concomitant]
  19. APRESOLINE [Concomitant]
  20. SPIRIVA [Concomitant]
  21. ALBUTEROL [Concomitant]

REACTIONS (1)
  - TRANSIENT ISCHAEMIC ATTACK [None]
